FAERS Safety Report 24172310 (Version 1)
Quarter: 2024Q3

REPORT INFORMATION
  Report Type: Spontaneous
  Country: FR (occurrence: FR)
  Receive Date: 20240805
  Receipt Date: 20240805
  Transmission Date: 20241016
  Serious: Yes (Death)
  Sender: ROCHE
  Company Number: None

PATIENT
  Age: 85 Year
  Sex: Female
  Weight: 29 kg

DRUGS (4)
  1. AVASTIN [Suspect]
     Active Substance: BEVACIZUMAB
     Indication: Rectal cancer stage IV
     Route: 042
     Dates: start: 20231206
  2. CACIT [Concomitant]
  3. INNOHEP [Concomitant]
     Active Substance: TINZAPARIN SODIUM
  4. FUROSEMIDE [Concomitant]
     Active Substance: FUROSEMIDE

REACTIONS (1)
  - Gastrointestinal perforation [Fatal]

NARRATIVE: CASE EVENT DATE: 20240620
